FAERS Safety Report 25958520 (Version 1)
Quarter: 2025Q4

REPORT INFORMATION
  Report Type: Spontaneous
  Country: CA (occurrence: CA)
  Receive Date: 20251024
  Receipt Date: 20251024
  Transmission Date: 20260118
  Serious: Yes (Death)
  Sender: TAIHO ONCOLOGY INC
  Company Number: CA-TAIHOP-2025-011534

PATIENT
  Sex: Female

DRUGS (1)
  1. INQOVI [Suspect]
     Active Substance: CEDAZURIDINE\DECITABINE
     Indication: Myelodysplastic syndrome
     Dosage: DOSE, FREQUENCY UNKNOWN.  DURATION OF EXPOSURE WAS LESS THAN 5 CYCLES
     Route: 048

REACTIONS (1)
  - Interstitial lung disease [Fatal]
